FAERS Safety Report 20821815 (Version 2)
Quarter: 2022Q4

REPORT INFORMATION
  Report Type: Spontaneous
  Country: US (occurrence: US)
  Receive Date: 20220512
  Receipt Date: 20221116
  Transmission Date: 20230112
  Serious: Yes (Other)
  Sender: FDA-Public Use
  Company Number: US-PFIZER INC-202200663062

PATIENT
  Age: 63 Year
  Sex: Female

DRUGS (1)
  1. IBRANCE [Suspect]
     Active Substance: PALBOCICLIB
     Dosage: UNK

REACTIONS (6)
  - Lymphadenectomy [Unknown]
  - Diarrhoea [Unknown]
  - Constipation [Unknown]
  - Insomnia [Unknown]
  - Vertigo [Unknown]
  - Migraine [Unknown]

NARRATIVE: CASE EVENT DATE: 20221113
